FAERS Safety Report 13523530 (Version 2)
Quarter: 2017Q3

REPORT INFORMATION
  Report Type: Spontaneous
  Country: US (occurrence: US)
  Receive Date: 20170508
  Receipt Date: 20170810
  Transmission Date: 20171127
  Serious: No
  Sender: FDA-Public Use
  Company Number: US-VIFOR (INTERNATIONAL) INC.-VIT-2017-04356

PATIENT
  Sex: Male

DRUGS (20)
  1. FENTANYL. [Concomitant]
     Active Substance: FENTANYL
  2. AMLODIPINE [Concomitant]
     Active Substance: AMLODIPINE BESYLATE
  3. OXYCODONE/PARACETAMOL [Concomitant]
  4. IPRATROPIUM BROMIDE/ALBUTAROL [Concomitant]
  5. CALCITRIOL. [Concomitant]
     Active Substance: CALCITRIOL
  6. SUCRALFATE. [Concomitant]
     Active Substance: SUCRALFATE
  7. MELOXICAM. [Concomitant]
     Active Substance: MELOXICAM
  8. OMEGA 3 [Concomitant]
     Active Substance: OMEGA-3 FATTY ACIDS
  9. GABAPENTIN. [Concomitant]
     Active Substance: GABAPENTIN
  10. METOPROLOL. [Concomitant]
     Active Substance: METOPROLOL
  11. VELTASSA [Suspect]
     Active Substance: PATIROMER
     Indication: HYPERKALAEMIA
  12. OMEPRAZOLE. [Concomitant]
     Active Substance: OMEPRAZOLE
  13. FUROSEMIDE. [Concomitant]
     Active Substance: FUROSEMIDE
  14. ESOMEPRA [Concomitant]
     Active Substance: ESOMEPRAZOLE
  15. PREDNISONE. [Concomitant]
     Active Substance: PREDNISONE
  16. FENOFIBRATE. [Concomitant]
     Active Substance: FENOFIBRATE
  17. SYMBICORT [Concomitant]
     Active Substance: BUDESONIDE\FORMOTEROL FUMARATE DIHYDRATE
  18. ALLOPURINOL. [Concomitant]
     Active Substance: ALLOPURINOL
  19. DULOXETINE. [Concomitant]
     Active Substance: DULOXETINE
  20. PROAIR HFA [Concomitant]
     Active Substance: ALBUTEROL SULFATE

REACTIONS (4)
  - Feeling abnormal [Unknown]
  - Drug dose omission [Not Recovered/Not Resolved]
  - Dysgeusia [Not Recovered/Not Resolved]
  - Product quality issue [Unknown]

NARRATIVE: CASE EVENT DATE: 2017
